FAERS Safety Report 7990779-4 (Version None)
Quarter: 2011Q4

REPORT INFORMATION
  Report Type: 
  Country: None (occurrence: None)
  Receive Date: 20111219
  Receipt Date: 20111213
  Transmission Date: 20120403
  Serious: Yes (Other)
  Sender: FDA-Public Use
  Company Number: GB-TEVA-313340ISR

PATIENT
  Age: 67 Year
  Sex: Female
  Weight: 61.5 kg

DRUGS (4)
  1. INFLUENZA VIRUS [Concomitant]
     Dates: start: 20111117, end: 20111117
  2. BENDROFLUMETHIAZIDE [Concomitant]
     Dates: start: 20111124
  3. SIMVASTATIN [Suspect]
     Dates: start: 20110712
  4. ZOPICLONE [Concomitant]
     Dates: start: 20110926, end: 20110927

REACTIONS (2)
  - SLEEP DISORDER [None]
  - NIGHTMARE [None]
